FAERS Safety Report 4714699-3 (Version None)
Quarter: 2005Q3

REPORT INFORMATION
  Report Type: 
  Country: None (occurrence: None)
  Receive Date: 20050712
  Receipt Date: 20050606
  Transmission Date: 20060218
  Serious: Yes (Hospitalization, Other)
  Sender: FDA-Public Use
  Company Number: 200410821BCA

PATIENT
  Age: 34 Year
  Sex: Male

DRUGS (26)
  1. GAMUNEX [Suspect]
     Indication: KIDNEY TRANSPLANT REJECTION
     Dosage: SEE IMAGE, INTRAVENOUS
     Route: 042
     Dates: start: 20040923, end: 20040927
  2. GAMUNEX [Suspect]
     Indication: KIDNEY TRANSPLANT REJECTION
     Dosage: SEE IMAGE, INTRAVENOUS
     Route: 042
     Dates: start: 20040911
  3. GAMUNEX [Suspect]
     Indication: KIDNEY TRANSPLANT REJECTION
     Dosage: SEE IMAGE, INTRAVENOUS
     Route: 042
     Dates: start: 20040912
  4. GAMUNEX [Suspect]
     Indication: KIDNEY TRANSPLANT REJECTION
     Dosage: SEE IMAGE, INTRAVENOUS
     Route: 042
     Dates: start: 20040913
  5. GAMUNEX [Suspect]
     Indication: KIDNEY TRANSPLANT REJECTION
     Dosage: SEE IMAGE, INTRAVENOUS
     Route: 042
     Dates: start: 20040914
  6. GAMUNEX [Suspect]
     Indication: KIDNEY TRANSPLANT REJECTION
     Dosage: SEE IMAGE, INTRAVENOUS
     Route: 042
     Dates: start: 20040915
  7. GAMUNEX [Suspect]
     Indication: KIDNEY TRANSPLANT REJECTION
     Dosage: SEE IMAGE, INTRAVENOUS
     Route: 042
     Dates: start: 20040917
  8. GAMUNEX [Suspect]
     Indication: KIDNEY TRANSPLANT REJECTION
     Dosage: SEE IMAGE, INTRAVENOUS
     Route: 042
     Dates: start: 20040922
  9. GAMUNEX [Suspect]
     Indication: KIDNEY TRANSPLANT REJECTION
     Dosage: SEE IMAGE, INTRAVENOUS
     Route: 042
     Dates: start: 20040928
  10. GAMUNEX [Suspect]
     Indication: KIDNEY TRANSPLANT REJECTION
     Dosage: SEE IMAGE, INTRAVENOUS
     Route: 042
     Dates: start: 20040929
  11. GAMUNEX [Suspect]
     Indication: KIDNEY TRANSPLANT REJECTION
     Dosage: SEE IMAGE, INTRAVENOUS
     Route: 042
     Dates: start: 20040930
  12. GAMUNEX [Suspect]
  13. GAMUNEX [Suspect]
  14. GAMUNEX [Suspect]
  15. GAMUNEX [Suspect]
  16. GAMUNEX [Suspect]
  17. GAMUNEX [Suspect]
  18. GAMUNEX [Suspect]
  19. PREDNISONE [Concomitant]
  20. PROGRAF [Concomitant]
  21. TIAZAC [Concomitant]
  22. PANTOPRAZOLE SODIUM [Concomitant]
  23. CLONAZEPAM [Concomitant]
  24. KAYEXALATE [Concomitant]
  25. SODIUM BICARBONATE [Concomitant]
  26. IMURAN [Concomitant]

REACTIONS (5)
  - ANTI-ERYTHROCYTE ANTIBODY POSITIVE [None]
  - COOMBS DIRECT TEST POSITIVE [None]
  - HAEMOGLOBIN DECREASED [None]
  - HAEMOLYSIS [None]
  - RETICULOCYTE COUNT INCREASED [None]
